FAERS Safety Report 10094357 (Version 1)
Quarter: 2014Q2

REPORT INFORMATION
  Report Type: Spontaneous
  Country: IT (occurrence: None)
  Receive Date: 20140418
  Receipt Date: 20140418
  Transmission Date: 20141212
  Serious: Yes (Death)
  Sender: FDA-Public Use
  Company Number: 2014IT00367

PATIENT
  Sex: Female

DRUGS (2)
  1. CARBOPLATIN (CARBOPLATIN) INJECTION, 6AUC [Suspect]
     Indication: OVARIAN CANCER
     Dosage: 6 UNK EVERY 2 WEEKS
  2. PACLITAXEL (PACLITAXEL) 175MG/M2 [Suspect]
     Indication: OVARIAN CANCER

REACTIONS (1)
  - Intestinal perforation [None]
